FAERS Safety Report 6204657-4 (Version None)
Quarter: 2009Q2

REPORT INFORMATION
  Report Type: 
  Country: None (occurrence: None)
  Receive Date: 20090527
  Receipt Date: 20090522
  Transmission Date: 20091009
  Serious: Yes (Hospitalization)
  Sender: FDA-Public Use
  Company Number: US-PFIZER INC-2009216767

PATIENT
  Sex: Female
  Weight: 72.562 kg

DRUGS (5)
  1. NAPROXEN [Suspect]
     Indication: OSTEOARTHRITIS
     Dosage: HIGH DOSE, FREQUENCY: VARIES
     Route: 048
     Dates: start: 20070502
  2. BLINDED *PLACEBO [Suspect]
     Indication: OSTEOARTHRITIS
     Dosage: HIGH DOSE, FREQUENCY: VARIES
     Route: 048
     Dates: start: 20070502
  3. BLINDED CELECOXIB [Suspect]
     Indication: OSTEOARTHRITIS
     Dosage: HIGH DOSE, FREQUENCY: VARIES
     Route: 048
     Dates: start: 20070502
  4. IBUPROFEN [Suspect]
     Indication: OSTEOARTHRITIS
     Dosage: HIGH DOSE, FREQUENCY: VARIES
     Route: 048
     Dates: start: 20070502
  5. NAPROXEN [Suspect]
     Dosage: HIGH DOSE, FREQUENCY: VARIES
     Route: 048
     Dates: start: 20070502

REACTIONS (1)
  - OSTEOARTHRITIS [None]
